FAERS Safety Report 13704054 (Version 6)
Quarter: 2018Q2

REPORT INFORMATION
  Report Type: Report from Study
  Country: GB (occurrence: GB)
  Receive Date: 20170629
  Receipt Date: 20180612
  Transmission Date: 20180711
  Serious: Yes (Hospitalization, Other)
  Sender: FDA-Public Use
  Company Number: GB-ROCHE-1732528

PATIENT
  Sex: Male

DRUGS (8)
  1. ESBRIET [Suspect]
     Active Substance: PIRFENIDONE
     Dosage: 2 CAPSULES THRICE A DAY
     Route: 048
  2. ESBRIET [Suspect]
     Active Substance: PIRFENIDONE
     Dosage: 9 TABLETS A DAY
     Route: 048
  3. ESBRIET [Suspect]
     Active Substance: PIRFENIDONE
     Dosage: 2 CAPSULES THRICE A DAY
     Route: 048
  4. METFORMIN [Concomitant]
     Active Substance: METFORMIN HYDROCHLORIDE
  5. ESBRIET [Suspect]
     Active Substance: PIRFENIDONE
     Route: 048
     Dates: start: 20160701
  6. ESBRIET [Suspect]
     Active Substance: PIRFENIDONE
     Route: 048
  7. ESBRIET [Suspect]
     Active Substance: PIRFENIDONE
     Indication: IDIOPATHIC PULMONARY FIBROSIS
     Route: 048
  8. ESBRIET [Suspect]
     Active Substance: PIRFENIDONE
     Indication: IDIOPATHIC PULMONARY FIBROSIS
     Route: 048
     Dates: start: 20160126

REACTIONS (23)
  - Abdominal distension [Not Recovered/Not Resolved]
  - Depressed mood [Recovering/Resolving]
  - Depression [Unknown]
  - Ill-defined disorder [Unknown]
  - Lower respiratory tract infection [Unknown]
  - Influenza [Unknown]
  - Arthritis infective [Unknown]
  - Quality of life decreased [Unknown]
  - Vomiting [Recovered/Resolved]
  - Decreased appetite [Not Recovered/Not Resolved]
  - Diarrhoea [Recovered/Resolved]
  - Decreased interest [Unknown]
  - Malaise [Unknown]
  - Arthralgia [Unknown]
  - Type 2 diabetes mellitus [Unknown]
  - Pulmonary oedema [Unknown]
  - Fatigue [Not Recovered/Not Resolved]
  - Asthenia [Unknown]
  - Pain [Unknown]
  - Lethargy [Recovering/Resolving]
  - Dizziness [Not Recovered/Not Resolved]
  - Somnolence [Unknown]
  - Heart rate irregular [Unknown]
